FAERS Safety Report 11655669 (Version 2)
Quarter: 2015Q4

REPORT INFORMATION
  Report Type: Spontaneous
  Country: PT (occurrence: PT)
  Receive Date: 20151023
  Receipt Date: 20151214
  Transmission Date: 20160304
  Serious: Yes (Hospitalization)
  Sender: FDA-Public Use
  Company Number: PT-DEP_12887_2015

PATIENT
  Age: 69 Year
  Sex: Female
  Weight: 110 kg

DRUGS (7)
  1. TRAZONE AC [Concomitant]
     Indication: DEPRESSION
     Dosage: DF
     Dates: start: 2014
  2. ZYLORIC [Concomitant]
     Active Substance: ALLOPURINOL
     Indication: GOUT
     Dosage: DF
     Dates: start: 20150910, end: 20150913
  3. VALSARTAN + HIDROCLOROTIAZIDA [Concomitant]
     Active Substance: HYDROCHLOROTHIAZIDE\VALSARTAN
     Indication: HYPERTENSION
     Dosage: DF
     Dates: start: 2014
  4. PALEXIA [Suspect]
     Active Substance: TAPENTADOL HYDROCHLORIDE
     Indication: OSTEOARTHRITIS
     Route: 048
     Dates: start: 20150910, end: 20150913
  5. PROTAXIL [Concomitant]
     Indication: OSTEOARTHRITIS
     Dosage: DF
     Dates: start: 20150910, end: 20150913
  6. CYCLO 3 FORT [Concomitant]
     Active Substance: ASCORBIC ACID\HESPERIDIN METHYLCHALCONE\RUSCUS ACULEATUS ROOT
     Indication: PERIPHERAL VENOUS DISEASE
     Dosage: DF
     Dates: start: 20150910, end: 20150913
  7. VIARTRIL-S [Concomitant]
     Indication: OSTEOARTHRITIS
     Dosage: DF
     Dates: start: 20150910, end: 20150913

REACTIONS (2)
  - Palpitations [Recovered/Resolved]
  - Tachyarrhythmia [Recovered/Resolved]

NARRATIVE: CASE EVENT DATE: 20150911
